FAERS Safety Report 10032448 (Version 2)
Quarter: 2014Q3

REPORT INFORMATION
  Report Type: Spontaneous
  Country: PL (occurrence: PL)
  Receive Date: 20140324
  Receipt Date: 20140708
  Transmission Date: 20150326
  Serious: Yes (Death, Other)
  Sender: FDA-Public Use
  Company Number: PL-ROCHE-1365201

PATIENT
  Age: 36 Year
  Sex: Male
  Weight: 86 kg

DRUGS (2)
  1. OXALIPLATIN. [Concomitant]
     Active Substance: OXALIPLATIN
     Indication: COLON CANCER
     Dosage: ONCE / COURSE
     Route: 042
     Dates: start: 20140218, end: 20140218
  2. XELODA [Suspect]
     Active Substance: CAPECITABINE
     Indication: COLON CANCER
     Route: 048
     Dates: start: 20140218, end: 20140302

REACTIONS (11)
  - Agranulocytosis [Unknown]
  - Neutropenia [Not Recovered/Not Resolved]
  - Pulmonary oedema [Unknown]
  - Large intestinal haemorrhage [Unknown]
  - Coagulopathy [Unknown]
  - Thrombocytopenia [Unknown]
  - Gastrointestinal inflammation [Unknown]
  - Polycythaemia [Unknown]
  - Circulatory collapse [Fatal]
  - Diarrhoea [Not Recovered/Not Resolved]
  - Liver injury [Unknown]

NARRATIVE: CASE EVENT DATE: 20140228
